FAERS Safety Report 16839846 (Version 1)
Quarter: 2019Q3

REPORT INFORMATION
  Report Type: Spontaneous
  Country: US (occurrence: US)
  Receive Date: 20190801
  Receipt Date: 20190801
  Transmission Date: 20191005
  Serious: Yes (Hospitalization)
  Sender: FDA-Public Use
  Company Number: None

PATIENT
  Age: 61 Year
  Sex: Female

DRUGS (7)
  1. DULOXETINE. [Concomitant]
     Active Substance: DULOXETINE
  2. PROBIOTIC [Concomitant]
     Active Substance: PROBIOTICS NOS
  3. CALCIUM [Concomitant]
     Active Substance: CALCIUM
  4. NAPROXEN. [Concomitant]
     Active Substance: NAPROXEN
  5. TRAZODONE [Concomitant]
     Active Substance: TRAZODONE HYDROCHLORIDE
  6. ORENCIA [Suspect]
     Active Substance: ABATACEPT
     Indication: RHEUMATOID ARTHRITIS
     Route: 058
     Dates: start: 20190315
  7. HYDROCOD?IBU [Concomitant]

REACTIONS (2)
  - Therapy cessation [None]
  - Animal bite [None]

NARRATIVE: CASE EVENT DATE: 20190701
